FAERS Safety Report 5177929-2 (Version None)
Quarter: 2006Q4

REPORT INFORMATION
  Report Type: 
  Country: None (occurrence: None)
  Receive Date: 20061208
  Receipt Date: 20061123
  Transmission Date: 20070319
  Serious: Yes (Hospitalization)
  Sender: FDA-Public Use
  Company Number: GXKR2006FR07587

PATIENT
  Age: 66 Year
  Sex: Female

DRUGS (1)
  1. PREDNISOLONE TAB [Suspect]
     Indication: TEMPORAL ARTERITIS
     Dosage: 15 MG, QD; SEE IMAGE

REACTIONS (2)
  - CHORIORETINOPATHY [None]
  - VISUAL ACUITY REDUCED [None]
